FAERS Safety Report 19142809 (Version 1)
Quarter: 2021Q2

REPORT INFORMATION
  Report Type: Spontaneous
  Country: US (occurrence: US)
  Receive Date: 20210416
  Receipt Date: 20210416
  Transmission Date: 20210717
  Serious: No
  Sender: FDA-Public Use
  Company Number: US-TERSERA THERAPEUTICS LLC-2020TRS003510

PATIENT

DRUGS (3)
  1. XERMELO [Suspect]
     Active Substance: TELOTRISTAT ETHYL
     Indication: CARCINOID TUMOUR PULMONARY
     Dosage: 250 MG, TID (1 TABLET BY MOUTH 3 TIMES DAILY)
     Route: 048
     Dates: start: 20200923
  2. XERMELO [Suspect]
     Active Substance: TELOTRISTAT ETHYL
     Dosage: 250 MG, TID WITH MEALS
     Route: 048
  3. XERMELO [Suspect]
     Active Substance: TELOTRISTAT ETHYL
     Dosage: 250 MG, TID
     Route: 048

REACTIONS (7)
  - Vomiting [Unknown]
  - Vitamin D decreased [Unknown]
  - Decreased appetite [Unknown]
  - Nausea [Unknown]
  - Hepatic enzyme increased [Unknown]
  - Abdominal pain upper [Recovering/Resolving]
  - Flatulence [Not Recovered/Not Resolved]

NARRATIVE: CASE EVENT DATE: 20210121
